FAERS Safety Report 9271284 (Version 2)
Quarter: 2013Q2

REPORT INFORMATION
  Report Type: Report from Study
  Country: CA (occurrence: CA)
  Receive Date: 20130506
  Receipt Date: 20130621
  Transmission Date: 20140414
  Serious: Yes (Hospitalization)
  Sender: FDA-Public Use
  Company Number: CA-ELI_LILLY_AND_COMPANY-CA201304007979

PATIENT
  Age: 81 Year
  Sex: Female

DRUGS (15)
  1. TERIPARATIDE [Suspect]
     Indication: OSTEOPOROSIS
     Dosage: 20 UG, QD
     Route: 058
     Dates: start: 20130316
  2. IRBESARTAN [Concomitant]
     Dosage: UNK UNK, QD
  3. SYNTHROID [Concomitant]
     Dosage: UNK
  4. FOSAMAX [Concomitant]
     Dosage: UNK
  5. LASIX                              /00032601/ [Concomitant]
     Dosage: UNK
  6. AMLODIPINE [Concomitant]
     Dosage: UNK
  7. OXYBUTYNIN [Concomitant]
     Dosage: UNK
  8. QUININE [Concomitant]
     Dosage: UNK
  9. NORTRIPTYLINE [Concomitant]
     Dosage: UNK
  10. DICLOFENAC [Concomitant]
     Dosage: UNK
  11. LYRICA [Concomitant]
     Dosage: UNK
  12. CALCIUM [Concomitant]
     Dosage: UNK
  13. GLUCOSAMINE [Concomitant]
     Dosage: UNK
  14. ASA [Concomitant]
     Dosage: 81 MG, UNK
  15. TRAMADOL [Concomitant]
     Dosage: UNK

REACTIONS (3)
  - Pelvic fracture [Not Recovered/Not Resolved]
  - Fall [Not Recovered/Not Resolved]
  - Balance disorder [Not Recovered/Not Resolved]
